FAERS Safety Report 17166565 (Version 1)
Quarter: 2019Q4

REPORT INFORMATION
  Report Type: Spontaneous
  Country: US (occurrence: US)
  Receive Date: 20191217
  Receipt Date: 20191217
  Transmission Date: 20200122
  Serious: Yes (Other)
  Sender: FDA-Public Use
  Company Number: US-NOVOPROD-701430

PATIENT
  Age: 50 Year
  Sex: Female
  Weight: 88.89 kg

DRUGS (1)
  1. SAXENDA [Suspect]
     Active Substance: LIRAGLUTIDE
     Indication: WEIGHT DECREASED
     Dosage: UNK
     Route: 058
     Dates: start: 201909, end: 20191206

REACTIONS (1)
  - Primary biliary cholangitis [Not Recovered/Not Resolved]

NARRATIVE: CASE EVENT DATE: 20191001
